FAERS Safety Report 7267915-0 (Version None)
Quarter: 2011Q1

REPORT INFORMATION
  Report Type: 
  Country: None (occurrence: None)
  Receive Date: 20110120
  Receipt Date: 20110105
  Transmission Date: 20110831
  Serious: Yes (Other)
  Sender: FDA-Public Use
  Company Number: AUR-APL-2010-03211

PATIENT
  Age: 69 Year
  Sex: Male

DRUGS (11)
  1. QUININE [Concomitant]
  2. MELOXICAM [Suspect]
     Indication: PAIN
     Dosage: 7.5MG - DAILY
     Dates: start: 20100916
  3. ISOSORBIDE DINITRATE [Concomitant]
  4. STEROIDS [Concomitant]
  5. TIOTROPIUM BROMIDE [Concomitant]
  6. OMEPRAZOLE [Concomitant]
  7. SERETIDE [Concomitant]
  8. VENTOLIN DS [Concomitant]
  9. BISOPROLOL FUMARATE [Suspect]
     Indication: BLOOD PRESSURE INCREASED
     Dosage: 1.25MG - DAILY
  10. ASPIRIN [Suspect]
     Indication: CARDIAC ARREST
     Dosage: 75MG - DAILY
  11. RAMIPRIL [Suspect]
     Indication: BLOOD PRESSURE INCREASED
     Dosage: 1.25MG - DAILY

REACTIONS (9)
  - GAIT DISTURBANCE [None]
  - CONFUSIONAL STATE [None]
  - HALLUCINATION [None]
  - EYE MOVEMENT DISORDER [None]
  - URINE COLOUR ABNORMAL [None]
  - SOMNOLENCE [None]
  - DELIRIUM [None]
  - DIARRHOEA [None]
  - DRUG INTERACTION [None]
